FAERS Safety Report 8558416 (Version 2)
Quarter: 2012Q4

REPORT INFORMATION
  Report Type: 
  Country: JP (occurrence: JP)
  Receive Date: 20120511
  Receipt Date: 20121005
  Transmission Date: 20130627
  Serious: Yes (Other)
  Sender: FDA-Public Use
  Company Number: JP-ALLERGAN-1206652US

PATIENT
  Age: 50 Year
  Sex: Male

DRUGS (1)
  1. ALESION [Suspect]
     Indication: URTICARIA
     Dosage: 20 mg, qd
     Route: 048
     Dates: start: 200710

REACTIONS (2)
  - Gastrointestinal haemorrhage [Recovered/Resolved]
  - Gastrointestinal erosion [Recovered/Resolved]
